FAERS Safety Report 4968901-3 (Version None)
Quarter: 2006Q2

REPORT INFORMATION
  Report Type: 
  Country: None (occurrence: None)
  Receive Date: 20060411
  Receipt Date: 20050915
  Transmission Date: 20061013
  Serious: Yes (Hospitalization, Other)
  Sender: FDA-Public Use
  Company Number: US-MERCK-0509USA02475

PATIENT
  Age: 62 Year
  Sex: Male
  Weight: 80 kg

DRUGS (4)
  1. VIOXX [Suspect]
     Indication: ARTHRALGIA
     Route: 048
     Dates: start: 20000101, end: 20040930
  2. VIOXX [Suspect]
     Indication: BACK PAIN
     Route: 048
     Dates: start: 20000101, end: 20040930
  3. ATENOLOL [Suspect]
     Indication: HYPERTENSION
     Route: 048
  4. CARDIZEM [Suspect]
     Indication: HYPERTENSION
     Route: 048

REACTIONS (23)
  - APATHY [None]
  - ARRHYTHMIA [None]
  - ARTERIAL OCCLUSIVE DISEASE [None]
  - ARTERIOSCLEROSIS [None]
  - BACK PAIN [None]
  - CARDIAC VALVE SCLEROSIS [None]
  - CARDIOVASCULAR DISORDER [None]
  - CAROTID ARTERY STENOSIS [None]
  - CEREBROVASCULAR ACCIDENT [None]
  - CEREBROVASCULAR DISORDER [None]
  - CHEST PAIN [None]
  - DIZZINESS [None]
  - FATIGUE [None]
  - HAEMORRHAGE [None]
  - HAEMORRHAGIC INFARCTION [None]
  - HAEMORRHAGIC STROKE [None]
  - HYPERTENSION [None]
  - LOSS OF LIBIDO [None]
  - PULMONARY VALVE INCOMPETENCE [None]
  - RESPIRATORY FAILURE [None]
  - SUBENDOCARDIAL ISCHAEMIA [None]
  - TRANSIENT ISCHAEMIC ATTACK [None]
  - VENTRICULAR HYPERTROPHY [None]
